FAERS Safety Report 20809927 (Version 12)
Quarter: 2023Q2

REPORT INFORMATION
  Report Type: Report from Study
  Country: US (occurrence: US)
  Receive Date: 20220510
  Receipt Date: 20230519
  Transmission Date: 20230721
  Serious: Yes (Other)
  Sender: FDA-Public Use
  Company Number: US-NOVARTISTESTPH-NVSC2022US106532

PATIENT
  Age: 47 Year
  Sex: Male

DRUGS (2)
  1. KESIMPTA [Suspect]
     Active Substance: OFATUMUMAB
     Indication: Multiple sclerosis
     Dosage: 20 MG, QMO
     Route: 058
     Dates: start: 20220428
  2. KESIMPTA [Suspect]
     Active Substance: OFATUMUMAB
     Indication: Relapsing multiple sclerosis
     Dosage: 20 MG, OTHER  (1 PEN EACH WEEK FOR 3 TOTAL WEEKS. SKIP A WEEK. BEGIN ONCE A MONTH)
     Route: 058
     Dates: start: 202204

REACTIONS (10)
  - Multiple sclerosis [Not Recovered/Not Resolved]
  - Influenza like illness [Unknown]
  - Peripheral coldness [Unknown]
  - Fatigue [Recovering/Resolving]
  - Lethargy [Unknown]
  - Pain [Unknown]
  - Muscular weakness [Recovered/Resolved]
  - Neuralgia [Recovering/Resolving]
  - Muscular weakness [Recovered/Resolved]
  - Weight increased [Unknown]

NARRATIVE: CASE EVENT DATE: 20220428
